FAERS Safety Report 16125960 (Version 2)
Quarter: 2019Q2

REPORT INFORMATION
  Report Type: Spontaneous
  Country: FR (occurrence: FR)
  Receive Date: 20190328
  Receipt Date: 20190401
  Transmission Date: 20190711
  Serious: Yes (Hospitalization)
  Sender: FDA-Public Use
  Company Number: FR-BRISTOL-MYERS SQUIBB COMPANY-BMS-2019-028185

PATIENT
  Age: 84 Year
  Sex: Female

DRUGS (1)
  1. OPDIVO [Suspect]
     Active Substance: NIVOLUMAB
     Indication: METASTATIC MALIGNANT MELANOMA
     Dosage: 240 MILLIGRAM
     Route: 042
     Dates: start: 20181210, end: 20190107

REACTIONS (2)
  - Lung disorder [Not Recovered/Not Resolved]
  - Bronchoalveolar lavage abnormal [Not Recovered/Not Resolved]

NARRATIVE: CASE EVENT DATE: 20190122
